FAERS Safety Report 6418563-3 (Version None)
Quarter: 2009Q4

REPORT INFORMATION
  Report Type: 
  Country: None (occurrence: None)
  Receive Date: 20091028
  Receipt Date: 20091019
  Transmission Date: 20100525
  Serious: Yes (Hospitalization)
  Sender: FDA-Public Use
  Company Number: US-AMGEN-US370012

PATIENT
  Sex: Male
  Weight: 100 kg

DRUGS (1)
  1. NPLATE [Suspect]
     Indication: IDIOPATHIC THROMBOCYTOPENIC PURPURA
     Dates: start: 20091006

REACTIONS (3)
  - ABDOMINAL PAIN [None]
  - PYREXIA [None]
  - RENAL FAILURE [None]
